FAERS Safety Report 11747730 (Version 2)
Quarter: 2015Q4

REPORT INFORMATION
  Report Type: Spontaneous
  Country: NL (occurrence: NL)
  Receive Date: 20151117
  Receipt Date: 20151201
  Transmission Date: 20160304
  Serious: Yes (Other)
  Sender: FDA-Public Use
  Company Number: NL-PFIZER INC-2015387436

PATIENT
  Age: 66 Year
  Sex: Female

DRUGS (7)
  1. THYRAX DUO [Concomitant]
     Dosage: 25 ?G, 1X/DAY
     Route: 048
     Dates: start: 201412
  2. THYRAX DUO [Concomitant]
     Dosage: 100 ?G, 1X/DAY
     Route: 048
  3. TIMOPTOL [Concomitant]
     Active Substance: TIMOLOL
     Dosage: 1 GTT (5 MG/ML), 1X/DAY IN BOTH EYES
     Route: 047
     Dates: start: 201412
  4. PAROXETINE [Concomitant]
     Active Substance: PAROXETINE\PAROXETINE HYDROCHLORIDE
     Dosage: 20 MG, 1X/DAY
     Route: 048
     Dates: start: 201412
  5. ASPIRIN. [Concomitant]
     Active Substance: ASPIRIN
     Dosage: 80 MG, 1X/DAY
     Route: 048
     Dates: start: 201412
  6. ATORVASTATIN CALCIUM. [Suspect]
     Active Substance: ATORVASTATIN CALCIUM
     Indication: HYPERCHOLESTEROLAEMIA
     Dosage: 40 MG, 1X/DAY (FOR THE NIGHT)
     Route: 048
     Dates: start: 20150509
  7. CETIRIZINE DIHCL PCH [Concomitant]
     Dosage: 10 MG, 1X/DAY
     Route: 048
     Dates: start: 201412

REACTIONS (6)
  - Hepatic function abnormal [Recovered/Resolved]
  - Abdominal pain upper [Recovered/Resolved]
  - Chromaturia [Recovered/Resolved]
  - Diarrhoea [Recovered/Resolved]
  - Regurgitation [Recovered/Resolved]
  - Nausea [Recovered/Resolved]

NARRATIVE: CASE EVENT DATE: 20150510
